FAERS Safety Report 9527464 (Version 1)
Quarter: 2013Q3

REPORT INFORMATION
  Report Type: Spontaneous
  Country: US (occurrence: US)
  Receive Date: 20130917
  Receipt Date: 20130917
  Transmission Date: 20140515
  Serious: Yes (Hospitalization, Other)
  Sender: FDA-Public Use
  Company Number: US-SUN PHARMACEUTICAL INDUSTRIES LTD-2013SUN04726

PATIENT
  Age: 54 Year
  Sex: Female

DRUGS (8)
  1. METFORMIN HCL ER TABS 500MG [Suspect]
     Indication: PRODUCT USED FOR UNKNOWN INDICATION
     Route: 065
  2. ASPIRIN [Suspect]
     Indication: PRODUCT USED FOR UNKNOWN INDICATION
     Route: 065
  3. IBUPROFEN [Suspect]
     Indication: PRODUCT USED FOR UNKNOWN INDICATION
     Route: 065
  4. ENALAPRIL [Suspect]
     Indication: PRODUCT USED FOR UNKNOWN INDICATION
     Route: 065
  5. GLIMEPIRIDE [Concomitant]
  6. NIMESULIDE [Concomitant]
  7. IMIPRAMINE [Concomitant]
  8. MORPHINE [Concomitant]

REACTIONS (5)
  - Atrial fibrillation [Recovering/Resolving]
  - Leukocytosis [Recovering/Resolving]
  - Pancreatic enzymes increased [Recovering/Resolving]
  - Renal failure acute [Recovering/Resolving]
  - Lactic acidosis [Recovering/Resolving]
